FAERS Safety Report 10071343 (Version 1)
Quarter: 2014Q2

REPORT INFORMATION
  Report Type: Spontaneous
  Country: US (occurrence: US)
  Receive Date: 20140410
  Receipt Date: 20140410
  Transmission Date: 20141212
  Serious: No
  Sender: FDA-Public Use
  Company Number: US-ASTRAZENECA-2014SE07275

PATIENT
  Age: 75 Year
  Sex: Male
  Weight: 79.4 kg

DRUGS (5)
  1. CAPRELSA [Suspect]
     Indication: NEOPLASM MALIGNANT
     Route: 048
  2. CAPRELSA [Suspect]
     Indication: NEOPLASM MALIGNANT
     Route: 048
  3. LEVOTHYROXINE [Concomitant]
     Indication: THYROID DISORDER
  4. CEPHALEXIN [Concomitant]
     Indication: ANTIBIOTIC THERAPY
  5. VITAMINS [Concomitant]

REACTIONS (6)
  - Skin wrinkling [Unknown]
  - Diarrhoea [Unknown]
  - Rash [Unknown]
  - Skin exfoliation [Unknown]
  - Pruritus [Unknown]
  - Skin exfoliation [Unknown]
